FAERS Safety Report 6386434-7 (Version None)
Quarter: 2009Q3

REPORT INFORMATION
  Report Type: 
  Country: None (occurrence: None)
  Receive Date: 20090930
  Receipt Date: 20090930
  Transmission Date: 20100115
  Serious: Yes (Hospitalization)
  Sender: FDA-Public Use
  Company Number: None

PATIENT
  Age: 64 Year
  Sex: Male
  Weight: 24.9478 kg

DRUGS (1)
  1. WARFARIN SODIUM [Suspect]
     Dates: start: 20090906, end: 20090929

REACTIONS (6)
  - ALCOHOL USE [None]
  - FALL [None]
  - HAEMATOMA [None]
  - HAEMOPTYSIS [None]
  - INTERNATIONAL NORMALISED RATIO INCREASED [None]
  - RECTAL HAEMORRHAGE [None]
